FAERS Safety Report 5763082-0 (Version None)
Quarter: 2008Q2

REPORT INFORMATION
  Report Type: 
  Country: None (occurrence: None)
  Receive Date: 20080602
  Receipt Date: 20080305
  Transmission Date: 20081010
  Serious: No
  Sender: FDA-Public Use
  Company Number: PHEH2008US02516

PATIENT
  Age: 86 Year
  Sex: Male

DRUGS (3)
  1. TEKTURNA [Suspect]
     Dosage: 150 MG
  2. CARDURA [Concomitant]
  3. NORVASC [Concomitant]

REACTIONS (1)
  - DYSPEPSIA [None]
